FAERS Safety Report 22186231 (Version 1)
Quarter: 2023Q2

REPORT INFORMATION
  Report Type: Spontaneous
  Country: US (occurrence: US)
  Receive Date: 20230407
  Receipt Date: 20230407
  Transmission Date: 20230721
  Serious: Yes (Other)
  Sender: FDA-Public Use
  Company Number: US-MYOVANT SCIENCES GMBH-2023MYSCI0400022

PATIENT
  Sex: Male

DRUGS (1)
  1. ORGOVYX [Suspect]
     Active Substance: RELUGOLIX
     Indication: Prostate cancer
     Dosage: 120 MILLIGRAM, QD
     Route: 048
     Dates: start: 2021

REACTIONS (6)
  - Phrenic nerve paralysis [Unknown]
  - Diaphragmatic paralysis [Unknown]
  - Coronary artery occlusion [Unknown]
  - Sarcoma [Unknown]
  - Gynaecomastia [Not Recovered/Not Resolved]
  - Breast pain [Not Recovered/Not Resolved]
